FAERS Safety Report 9054434 (Version 1)
Quarter: 2013Q1

REPORT INFORMATION
  Report Type: Spontaneous
  Country: US (occurrence: US)
  Receive Date: 20130208
  Receipt Date: 20130208
  Transmission Date: 20140127
  Serious: No
  Sender: FDA-Public Use
  Company Number: US-GLAXOSMITHKLINE-A0967740A

PATIENT
  Sex: Male

DRUGS (1)
  1. PAXIL [Suspect]
     Indication: PRODUCT USED FOR UNKNOWN INDICATION

REACTIONS (6)
  - Drug withdrawal syndrome [Not Recovered/Not Resolved]
  - Restless legs syndrome [Unknown]
  - Restlessness [Unknown]
  - Anxiety [Unknown]
  - Hyperhidrosis [Unknown]
  - Weight increased [Unknown]
